FAERS Safety Report 25111614 (Version 5)
Quarter: 2025Q2

REPORT INFORMATION
  Report Type: Spontaneous
  Country: US (occurrence: US)
  Receive Date: 20250324
  Receipt Date: 20250623
  Transmission Date: 20250716
  Serious: No
  Sender: TRAVERE THERAPEUTICS
  Company Number: US-TRAVERE-2025TVT00244

PATIENT
  Age: 75 Year
  Sex: Female

DRUGS (2)
  1. FILSPARI [Suspect]
     Active Substance: SPARSENTAN
     Indication: IgA nephropathy
     Route: 048
  2. FILSPARI [Suspect]
     Active Substance: SPARSENTAN
     Route: 048
     Dates: start: 202503

REACTIONS (8)
  - Neck pain [None]
  - Peripheral swelling [None]
  - Blood glucose abnormal [Unknown]
  - Pruritus [Recovering/Resolving]
  - Dry skin [Recovering/Resolving]
  - Joint swelling [Unknown]
  - Nausea [Unknown]
  - Urine output decreased [Unknown]

NARRATIVE: CASE EVENT DATE: 20250218
